FAERS Safety Report 9632286 (Version 2)
Quarter: 2013Q4

REPORT INFORMATION
  Report Type: Spontaneous
  Country: BR (occurrence: BR)
  Receive Date: 20131018
  Receipt Date: 20131113
  Transmission Date: 20140711
  Serious: No
  Sender: FDA-Public Use
  Company Number: BR-PFIZER INC-2013298489

PATIENT
  Age: 64 Year
  Sex: Male

DRUGS (3)
  1. LYRICA [Suspect]
     Dosage: UNK
     Dates: start: 201303
  2. DIOSMIN SDU [Concomitant]
     Indication: THROMBOSIS
     Route: 048
  3. DIOSMIN SDU [Concomitant]
     Indication: LOCAL SWELLING

REACTIONS (1)
  - Spinal pain [Unknown]
